FAERS Safety Report 7024223-0 (Version None)
Quarter: 2010Q4

REPORT INFORMATION
  Report Type: 
  Country: None (occurrence: None)
  Receive Date: 20101001
  Receipt Date: 20100923
  Transmission Date: 20110411
  Serious: Yes (Hospitalization)
  Sender: FDA-Public Use
  Company Number: DE-ROCHE-729813

PATIENT
  Sex: Male
  Weight: 90 kg

DRUGS (13)
  1. TOCILIZUMAB [Suspect]
     Indication: RHEUMATOID ARTHRITIS
     Route: 042
     Dates: start: 20090910, end: 20100301
  2. TOCILIZUMAB [Suspect]
     Route: 042
     Dates: start: 20100401
  3. TOCILIZUMAB [Suspect]
     Route: 042
     Dates: start: 20100712
  4. METHOTREXATE [Suspect]
     Indication: RHEUMATOID ARTHRITIS
     Route: 058
     Dates: start: 20041001, end: 20050101
  5. METHOTREXATE [Suspect]
     Route: 058
     Dates: start: 20050101
  6. METHOTREXATE [Suspect]
     Route: 058
     Dates: start: 20100623
  7. PREDNISOLONE [Concomitant]
  8. FOLSAN [Concomitant]
     Route: 048
  9. CALCIUM [Concomitant]
  10. VIGANTOLETTEN [Concomitant]
  11. NOVALGIN [Concomitant]
  12. METFORMIN [Concomitant]
  13. NEXIUM [Concomitant]

REACTIONS (2)
  - GENERAL PHYSICAL HEALTH DETERIORATION [None]
  - OEDEMA PERIPHERAL [None]
